FAERS Safety Report 20713305 (Version 1)
Quarter: 2022Q2

REPORT INFORMATION
  Report Type: Spontaneous
  Country: CA (occurrence: CA)
  Receive Date: 20220415
  Receipt Date: 20220415
  Transmission Date: 20220721
  Serious: Yes (Disabling, Other)
  Sender: FDA-Public Use
  Company Number: CA-STRIDES ARCOLAB LIMITED-2022SP003916

PATIENT
  Age: 30 Year
  Sex: Male

DRUGS (2)
  1. ETOPOSIDE [Suspect]
     Active Substance: ETOPOSIDE
     Indication: Testicular cancer metastatic
     Dosage: 60 MILLIGRAM/SQ. METER (60% DOSE; ADMINISTERED ON DAYS 1 TO 5 EVERY 21 DAYS.)
     Route: 065
  2. CISPLATIN [Suspect]
     Active Substance: CISPLATIN
     Indication: Testicular cancer metastatic
     Dosage: 20 MILLIGRAM/SQ. METER (ADMINISTERED ON DAYS 1 TO 5 EVERY 21 DAYS.)
     Route: 065

REACTIONS (4)
  - Loss of personal independence in daily activities [Recovered/Resolved]
  - Peripheral sensorimotor neuropathy [Recovered/Resolved]
  - Febrile neutropenia [Unknown]
  - Off label use [Unknown]
